FAERS Safety Report 22331151 (Version 1)
Quarter: 2023Q2

REPORT INFORMATION
  Report Type: Report from Study
  Country: IT (occurrence: IT)
  Receive Date: 20230517
  Receipt Date: 20230517
  Transmission Date: 20230722
  Serious: Yes (Hospitalization)
  Sender: FDA-Public Use
  Company Number: IT-JNJFOC-20210417465

PATIENT
  Age: 17 Year
  Sex: Female
  Weight: 57.5 kg

DRUGS (28)
  1. PLACEBO [Suspect]
     Active Substance: UNSPECIFIED INGREDIENT
     Indication: Major depression
     Dates: start: 20201203, end: 20201228
  2. PLACEBO [Suspect]
     Active Substance: UNSPECIFIED INGREDIENT
     Indication: Suicidal ideation
  3. LORAZEPAM [Concomitant]
     Active Substance: LORAZEPAM
     Indication: Insomnia
     Route: 048
     Dates: start: 20201203, end: 20210327
  4. LORAZEPAM [Concomitant]
     Active Substance: LORAZEPAM
     Indication: Intentional self-injury
     Route: 048
     Dates: start: 20201204, end: 20210327
  5. LORAZEPAM [Concomitant]
     Active Substance: LORAZEPAM
     Indication: Suicide attempt
     Route: 048
     Dates: start: 20210107, end: 20210221
  6. LORAZEPAM [Concomitant]
     Active Substance: LORAZEPAM
     Indication: Anxiety
     Route: 048
     Dates: start: 20210222, end: 20210327
  7. LORAZEPAM [Concomitant]
     Active Substance: LORAZEPAM
     Indication: Psychomotor hyperactivity
     Route: 048
     Dates: start: 20210404
  8. LORAZEPAM [Concomitant]
     Active Substance: LORAZEPAM
     Route: 048
     Dates: start: 20210428, end: 20210503
  9. LORAZEPAM [Concomitant]
     Active Substance: LORAZEPAM
     Route: 048
     Dates: start: 20210403, end: 20210403
  10. LITHIUM SULFATE [Concomitant]
     Active Substance: LITHIUM SULFATE
     Indication: Drug therapy
     Route: 048
     Dates: start: 20210228, end: 20210315
  11. LITHIUM SULFATE [Concomitant]
     Active Substance: LITHIUM SULFATE
     Indication: Major depression
     Route: 048
     Dates: start: 20210316, end: 20210326
  12. LITHIUM SULFATE [Concomitant]
     Active Substance: LITHIUM SULFATE
     Dosage: 2 CP/DAILY
     Route: 048
     Dates: start: 20210327
  13. QUETIAPINE [Concomitant]
     Active Substance: QUETIAPINE
     Indication: Major depression
     Route: 048
     Dates: start: 20210225, end: 20210327
  14. QUETIAPINE [Concomitant]
     Active Substance: QUETIAPINE
     Indication: Aggression
     Route: 048
     Dates: start: 20210327, end: 20210502
  15. QUETIAPINE [Concomitant]
     Active Substance: QUETIAPINE
     Indication: Insomnia
     Route: 048
     Dates: start: 20210327, end: 20210427
  16. QUETIAPINE [Concomitant]
     Active Substance: QUETIAPINE
     Indication: Bipolar disorder
  17. SERTRALINE [Concomitant]
     Active Substance: SERTRALINE HYDROCHLORIDE
     Indication: Major depression
     Route: 048
     Dates: start: 20210317, end: 20210327
  18. CLONAZEPAM [Concomitant]
     Active Substance: CLONAZEPAM
     Indication: Anxiety
     Route: 048
     Dates: start: 20210327, end: 20210424
  19. CLONAZEPAM [Concomitant]
     Active Substance: CLONAZEPAM
     Route: 048
     Dates: start: 20210425, end: 20210425
  20. CLONAZEPAM [Concomitant]
     Active Substance: CLONAZEPAM
     Route: 048
     Dates: start: 20210426, end: 20210427
  21. CLONAZEPAM [Concomitant]
     Active Substance: CLONAZEPAM
     Route: 048
     Dates: start: 20210428, end: 20210428
  22. CLOZAPINE [Concomitant]
     Active Substance: CLOZAPINE
     Indication: Bipolar disorder
     Route: 048
     Dates: start: 20210428, end: 20210428
  23. CLOZAPINE [Concomitant]
     Active Substance: CLOZAPINE
     Route: 048
     Dates: start: 20210429, end: 20210502
  24. CLOZAPINE [Concomitant]
     Active Substance: CLOZAPINE
     Route: 048
     Dates: start: 20210503, end: 20210603
  25. CLOZAPINE [Concomitant]
     Active Substance: CLOZAPINE
     Route: 048
     Dates: start: 20210604
  26. SOLLIEVO BIO [Concomitant]
     Indication: Constipation
     Dosage: AS NECESSARY
     Route: 048
     Dates: start: 20210315, end: 20210530
  27. MELATONIN [Concomitant]
     Active Substance: MELATONIN
     Indication: Insomnia
     Route: 048
     Dates: start: 20210504, end: 20210507
  28. MELATONIN [Concomitant]
     Active Substance: MELATONIN
     Route: 048
     Dates: start: 20210601

REACTIONS (1)
  - Psychomotor hyperactivity [Recovered/Resolved]

NARRATIVE: CASE EVENT DATE: 20210403
